FAERS Safety Report 13964038 (Version 3)
Quarter: 2017Q4

REPORT INFORMATION
  Report Type: Report from Study
  Country: FR (occurrence: FR)
  Receive Date: 20170913
  Receipt Date: 20171205
  Transmission Date: 20180320
  Serious: Yes (Hospitalization, Disabling, Other)
  Sender: FDA-Public Use
  Company Number: FR-ROCHE-1584902

PATIENT
  Age: 72 Year
  Sex: Male

DRUGS (4)
  1. RANIBIZUMAB. [Suspect]
     Active Substance: RANIBIZUMAB
     Dosage: FOR ONE DAY.
     Route: 031
     Dates: start: 201503, end: 201503
  2. RANIBIZUMAB. [Suspect]
     Active Substance: RANIBIZUMAB
     Dosage: LEFT EYE
     Route: 031
     Dates: start: 20150212
  3. RANIBIZUMAB. [Suspect]
     Active Substance: RANIBIZUMAB
     Dosage: LEFT EYE
     Route: 031
     Dates: start: 20150115, end: 201503
  4. RANIBIZUMAB. [Suspect]
     Active Substance: RANIBIZUMAB
     Indication: DIABETIC RETINAL OEDEMA
     Dosage: LEFT EYE
     Route: 031
     Dates: start: 20141218

REACTIONS (15)
  - Posterior capsule opacification [Not Recovered/Not Resolved]
  - Device loosening [Recovered/Resolved]
  - Suicidal ideation [Unknown]
  - Pain in extremity [Not Recovered/Not Resolved]
  - Ocular hypertension [Recovered/Resolved]
  - Weight decreased [Unknown]
  - Post procedural infection [Recovered/Resolved]
  - Staphylococcal infection [Recovered/Resolved]
  - Wound secretion [Unknown]
  - Arthralgia [Not Recovered/Not Resolved]
  - Bronchitis [Unknown]
  - Arthritis infective [Unknown]
  - Pain [Unknown]
  - Hip fracture [Recovering/Resolving]
  - Eschar [Not Recovered/Not Resolved]

NARRATIVE: CASE EVENT DATE: 20150320
